FAERS Safety Report 19041651 (Version 2)
Quarter: 2024Q1

REPORT INFORMATION
  Report Type: Spontaneous
  Country: PT (occurrence: PT)
  Receive Date: 20210322
  Receipt Date: 20240321
  Transmission Date: 20240410
  Serious: Yes (Other)
  Sender: FDA-Public Use
  Company Number: PT-AMGEN-PRTSP2019045280

PATIENT
  Age: 64 Year
  Sex: Female
  Weight: 87 kg

DRUGS (33)
  1. XGEVA [Suspect]
     Active Substance: DENOSUMAB
     Indication: HER2 positive breast cancer
     Dosage: UNK
     Route: 065
  2. XGEVA [Suspect]
     Active Substance: DENOSUMAB
     Dosage: 120 MILLIGRAM, Q3WK
     Route: 058
     Dates: start: 20180509
  3. HERCEPTIN [Suspect]
     Active Substance: TRASTUZUMAB
     Indication: HER2 positive breast cancer
     Dosage: 600 MILLIGRAM, Q3WK
     Route: 042
     Dates: start: 20171024, end: 20180823
  4. HERCEPTIN [Suspect]
     Active Substance: TRASTUZUMAB
     Dosage: 600 MILLIGRAM, Q3WK
     Route: 042
     Dates: start: 20180906, end: 20200218
  5. DOCETAXEL [Suspect]
     Active Substance: DOCETAXEL\DOCETAXEL ANHYDROUS
     Indication: HER2 positive breast cancer
     Dosage: UNK UNK, Q3WK
     Route: 042
     Dates: start: 20170124
  6. TAXOTERE [Suspect]
     Active Substance: DOCETAXEL
     Indication: HER2 positive breast cancer
     Dosage: UNK UNK, Q3WK, MOST RECNT DOSE ON 30/JAN/2018
     Route: 042
     Dates: start: 20171024
  7. FEMARA [Suspect]
     Active Substance: LETROZOLE
     Indication: HER2 positive breast cancer
     Dosage: 2.5 MILLIGRAM, QD
     Route: 048
     Dates: start: 20180417, end: 20180906
  8. PERJETA [Suspect]
     Active Substance: PERTUZUMAB
     Indication: HER2 positive breast cancer
     Dosage: 420 MILLIGRAM, Q3WK
     Route: 042
     Dates: start: 20171024, end: 20180130
  9. PERJETA [Suspect]
     Active Substance: PERTUZUMAB
     Dosage: 420 MILLIGRAM, Q3WK
     Route: 042
     Dates: start: 20180906, end: 20220218
  10. PERJETA [Suspect]
     Active Substance: PERTUZUMAB
     Dosage: 420 MILLIGRAM, Q3WK
     Route: 042
     Dates: start: 20180327, end: 20180823
  11. OMEPRAZOLE [Concomitant]
     Active Substance: OMEPRAZOLE
     Route: 065
  12. BUDESONIDE [Concomitant]
     Active Substance: BUDESONIDE
     Route: 065
  13. METFORMIN [Concomitant]
     Active Substance: METFORMIN HYDROCHLORIDE
     Route: 065
  14. ESCITALOPRAM [Concomitant]
     Active Substance: ESCITALOPRAM OXALATE
     Route: 065
  15. MORPHINE [Concomitant]
     Active Substance: MORPHINE
     Route: 065
  16. LISINOPRIL [Concomitant]
     Active Substance: LISINOPRIL
     Route: 065
  17. BUPRENORPHINE [Concomitant]
     Active Substance: BUPRENORPHINE
     Dosage: UNK
     Route: 065
     Dates: start: 20180108, end: 20180108
  18. ACETAMINOPHEN [Concomitant]
     Active Substance: ACETAMINOPHEN
     Dosage: UNK
     Route: 065
     Dates: start: 20180108
  19. NAPROXEN [Concomitant]
     Active Substance: NAPROXEN
     Dosage: UNK
     Route: 065
     Dates: start: 20180706
  20. MONTELUKAST [Concomitant]
     Active Substance: MONTELUKAST SODIUM
     Route: 065
  21. ROSUVASTATIN [Concomitant]
     Active Substance: ROSUVASTATIN
     Route: 065
  22. DIAZEPAM [Concomitant]
     Active Substance: DIAZEPAM
     Route: 065
  23. THIOCOLCHICOSIDE [Concomitant]
     Active Substance: THIOCOLCHICOSIDE
     Dosage: UNK
     Dates: start: 20180108
  24. THIOCOLCHICOSIDE [Concomitant]
     Active Substance: THIOCOLCHICOSIDE
     Dosage: UNK
     Route: 065
     Dates: start: 20180706
  25. FORMOTEROL [Concomitant]
     Active Substance: FORMOTEROL
     Route: 065
  26. BILASTINE [Concomitant]
     Active Substance: BILASTINE
     Route: 065
  27. INSULIN PORK\INSULIN PURIFIED PORK [Concomitant]
     Active Substance: INSULIN PORK\INSULIN PURIFIED PORK
     Route: 065
  28. CEFUROXIME [Concomitant]
     Active Substance: CEFUROXIME
     Indication: Pyelonephritis
     Dosage: UNK
     Route: 065
     Dates: start: 20180718
  29. ZOLPIDEM [Concomitant]
     Active Substance: ZOLPIDEM TARTRATE
     Route: 065
  30. ENOXAPARIN [Concomitant]
     Active Substance: ENOXAPARIN
     Dosage: UNK
     Route: 065
  31. LOPERAMIDE [Concomitant]
     Active Substance: LOPERAMIDE
  32. ALPRAZOLAM [Concomitant]
     Active Substance: ALPRAZOLAM
  33. METOCLOPRAMIDE [Concomitant]
     Active Substance: METOCLOPRAMIDE

REACTIONS (2)
  - Cholestasis [Recovered/Resolved]
  - Diarrhoea [Recovered/Resolved]

NARRATIVE: CASE EVENT DATE: 20180130
